FAERS Safety Report 6315663-3 (Version None)
Quarter: 2009Q3

REPORT INFORMATION
  Report Type: 
  Country: None (occurrence: None)
  Receive Date: 20090818
  Receipt Date: 20090403
  Transmission Date: 20100115
  Serious: Yes (Disabling)
  Sender: FDA-Public Use
  Company Number: THQ2009A03929

PATIENT
  Age: 78 Year
  Sex: Female

DRUGS (5)
  1. LANSOPRAZOLE [Suspect]
     Indication: DYSPEPSIA
     Dosage: 15 MG PER ORAL
     Route: 048
     Dates: start: 20080731, end: 20081106
  2. ASPIRIN [Concomitant]
  3. ATORVASTATIN [Concomitant]
  4. FELODIPINE [Concomitant]
  5. OMEPRAZOLE [Concomitant]

REACTIONS (5)
  - DERMATITIS EXFOLIATIVE [None]
  - MYALGIA [None]
  - OEDEMA PERIPHERAL [None]
  - PRURITUS [None]
  - SKIN DISCOLOURATION [None]
